FAERS Safety Report 4313514-X (Version None)
Quarter: 2004Q1

REPORT INFORMATION
  Report Type: 
  Country: None (occurrence: None)
  Receive Date: 20040304
  Receipt Date: 20040225
  Transmission Date: 20041129
  Serious: Yes (Hospitalization)
  Sender: FDA-Public Use
  Company Number: 2004UW00822

PATIENT
  Age: 75 Year
  Sex: Male

DRUGS (5)
  1. ELAVIL [Suspect]
     Indication: POST HERPETIC NEURALGIA
     Dosage: 10 MG QD PO
     Route: 048
     Dates: start: 20030714, end: 20030910
  2. CARBAMAZEPINE [Suspect]
     Dates: start: 20030714, end: 20030910
  3. ACETAMINOPHEN [Concomitant]
  4. CEFOTIAM HYDROCHLORIDE [Concomitant]
  5. CLINDAMYCIN PHOSPHATE [Concomitant]

REACTIONS (13)
  - ALANINE AMINOTRANSFERASE INCREASED [None]
  - BLOOD LACTATE DEHYDROGENASE INCREASED [None]
  - CONDITION AGGRAVATED [None]
  - DRUG HYPERSENSITIVITY [None]
  - EOSINOPHIL COUNT INCREASED [None]
  - ERYTHEMA [None]
  - GAMMA-GLUTAMYLTRANSFERASE INCREASED [None]
  - GENERALISED ERYTHEMA [None]
  - HEPATIC FUNCTION ABNORMAL [None]
  - HUMAN HERPES VIRUS 6 SEROLOGY POSITIVE [None]
  - LYMPHOCYTE STIMULATION TEST POSITIVE [None]
  - PYREXIA [None]
  - WHITE BLOOD CELL COUNT INCREASED [None]
